FAERS Safety Report 5845893-6 (Version None)
Quarter: 2008Q3

REPORT INFORMATION
  Report Type: 
  Country: None (occurrence: None)
  Receive Date: 20080814
  Receipt Date: 20080807
  Transmission Date: 20090109
  Serious: Yes (Hospitalization, Other)
  Sender: FDA-Public Use
  Company Number: US-ELI_LILLY_AND_COMPANY-US200808001554

PATIENT
  Sex: Male

DRUGS (3)
  1. HUMULIN 70/30 [Suspect]
     Dosage: 20 U, EACH MORNING
     Dates: start: 20060101
  2. HUMULIN 70/30 [Suspect]
     Dosage: 25 U, EACH EVENING
  3. HUMULIN 70/30 [Suspect]
     Dosage: 35 U, 2/D

REACTIONS (5)
  - DIABETES MELLITUS INADEQUATE CONTROL [None]
  - FALL [None]
  - FOOT FRACTURE [None]
  - JOINT INJURY [None]
  - LOCALISED INFECTION [None]
